FAERS Safety Report 22633627 (Version 5)
Quarter: 2023Q4

REPORT INFORMATION
  Report Type: Report from Study
  Country: CA (occurrence: CA)
  Receive Date: 20230623
  Receipt Date: 20231228
  Transmission Date: 20240110
  Serious: Yes (Hospitalization, Other)
  Sender: FDA-Public Use
  Company Number: CA-JNJFOC-20221118992

PATIENT
  Age: 61 Year
  Sex: Female

DRUGS (5)
  1. SIMPONI [Suspect]
     Active Substance: GOLIMUMAB
     Indication: Rheumatoid arthritis
     Route: 058
     Dates: start: 20201208
  2. SIMPONI [Suspect]
     Active Substance: GOLIMUMAB
     Route: 058
  3. SIMPONI [Suspect]
     Active Substance: GOLIMUMAB
     Route: 058
  4. METHOTREXATE [Concomitant]
     Active Substance: METHOTREXATE
  5. DOXYCYCLINE [Concomitant]
     Active Substance: DOXYCYCLINE
     Indication: Product used for unknown indication
     Dosage: FOR 6 WEEKS
     Route: 065

REACTIONS (8)
  - Postoperative wound infection [Not Recovered/Not Resolved]
  - Spinal cord infection [Not Recovered/Not Resolved]
  - Post procedural complication [Unknown]
  - Surgery [Unknown]
  - Foot fracture [Unknown]
  - Rheumatoid arthritis [Not Recovered/Not Resolved]
  - Thyroid mass [Unknown]
  - Weight decreased [Unknown]

NARRATIVE: CASE EVENT DATE: 20230601
